FAERS Safety Report 23734445 (Version 2)
Quarter: 2024Q2

REPORT INFORMATION
  Report Type: Report from Study
  Country: US (occurrence: US)
  Receive Date: 20240412
  Receipt Date: 20240415
  Transmission Date: 20240715
  Serious: Yes (Death)
  Sender: FDA-Public Use
  Company Number: US-ABBVIE-5175082

PATIENT
  Age: 23 Year
  Sex: Female

DRUGS (1)
  1. SKYRIZI [Suspect]
     Active Substance: RISANKIZUMAB-RZAA
     Indication: Psoriasis
     Route: 058
     Dates: start: 2023

REACTIONS (9)
  - Death [Fatal]
  - Psoriasis [Not Recovered/Not Resolved]
  - Weight increased [Unknown]
  - Bipolar disorder [Unknown]
  - Blood glucose abnormal [Unknown]
  - Reading disorder [Unknown]
  - Pharyngitis streptococcal [Unknown]
  - Skin disorder [Unknown]
  - Gastrointestinal disorder [Unknown]

NARRATIVE: CASE EVENT DATE: 20231228
